FAERS Safety Report 5327395-9 (Version None)
Quarter: 2007Q2

REPORT INFORMATION
  Report Type: 
  Country: None (occurrence: None)
  Receive Date: 20070517
  Receipt Date: 20070501
  Transmission Date: 20071010
  Serious: Yes (Hospitalization)
  Sender: FDA-Public Use
  Company Number: US-GENENTECH-241459

PATIENT

DRUGS (5)
  1. BEVACIZUMAB [Suspect]
     Indication: ADENOCARCINOMA PANCREAS
     Dosage: 10 MG/KG, DAYS 1+15
     Route: 042
     Dates: start: 20061121
  2. CETUXIMAB [Suspect]
     Indication: ADENOCARCINOMA PANCREAS
     Dosage: 400 MG/M2, UNK
     Route: 042
     Dates: start: 20061121
  3. CETUXIMAB [Suspect]
     Dosage: 250 MG/M2, UNK
     Route: 042
     Dates: start: 20061121
  4. CETUXIMAB [Suspect]
     Dosage: 250 MG/M2, DAYS1,8,15
  5. GEMCITABINE [Suspect]
     Indication: ADENOCARCINOMA PANCREAS
     Dosage: 1000 MG/M2, UNK
     Route: 042
     Dates: start: 20061121

REACTIONS (3)
  - CONFUSIONAL STATE [None]
  - HEADACHE [None]
  - HYPERTENSION [None]
